FAERS Safety Report 12944378 (Version 1)
Quarter: 2016Q4

REPORT INFORMATION
  Report Type: Spontaneous
  Country: RO (occurrence: RO)
  Receive Date: 20161115
  Receipt Date: 20161115
  Transmission Date: 20170207
  Serious: Yes (Other)
  Sender: FDA-Public Use
  Company Number: RO-ABBVIE-16P-135-1780619-00

PATIENT
  Age: 55 Year
  Sex: Male

DRUGS (3)
  1. RISPERIDONE. [Suspect]
     Active Substance: RISPERIDONE
     Indication: SCHIZOPHRENIA
     Route: 048
  2. LEVOMEPROMAZINE [Suspect]
     Active Substance: LEVOMEPROMAZINE
     Indication: SCHIZOPHRENIA
     Route: 048
  3. VALPROATE SODIUM. [Suspect]
     Active Substance: VALPROATE SODIUM
     Indication: SCHIZOPHRENIA
     Dosage: GASTRO-RESISTANT TABLET
     Route: 048

REACTIONS (9)
  - Delusion [Unknown]
  - Aggression [Unknown]
  - Frontotemporal dementia [Unknown]
  - Psychotic disorder [Unknown]
  - Hallucination [Unknown]
  - Abnormal behaviour [Unknown]
  - Extrapyramidal disorder [Unknown]
  - Disturbance in social behaviour [Unknown]
  - Cognitive disorder [Unknown]
